FAERS Safety Report 19202518 (Version 5)
Quarter: 2021Q2

REPORT INFORMATION
  Report Type: Report from Study
  Country: US (occurrence: US)
  Receive Date: 20210430
  Receipt Date: 20210625
  Transmission Date: 20210717
  Serious: Yes (Hospitalization)
  Sender: FDA-Public Use
  Company Number: US-GLAXOSMITHKLINE-US2021GSK092216

PATIENT
  Age: 39 Year
  Sex: Female
  Weight: 70.31 kg

DRUGS (9)
  1. PACLITAXEL. [Suspect]
     Active Substance: PACLITAXEL
     Dosage: UNK
     Route: 048
     Dates: start: 20210423
  2. DOSTARLIMAB [Suspect]
     Active Substance: DOSTARLIMAB
     Dosage: UNK
     Route: 042
     Dates: start: 20210422, end: 20210422
  3. ENCEQUIDAR. [Suspect]
     Active Substance: ENCEQUIDAR
     Dosage: UNK
     Route: 048
     Dates: start: 20210422, end: 20210422
  4. CARBOPLATIN (NON?GSK COMPARATOR) [Suspect]
     Active Substance: CARBOPLATIN
     Indication: HIV INFECTION
     Dosage: 220 MG, Z (Q3WKS)
     Route: 042
     Dates: start: 20210401, end: 20210401
  5. CARBOPLATIN (NON?GSK COMPARATOR) [Suspect]
     Active Substance: CARBOPLATIN
     Dosage: UNK
     Route: 042
     Dates: start: 20210422, end: 20210422
  6. PACLITAXEL. [Suspect]
     Active Substance: PACLITAXEL
     Indication: HIV INFECTION
     Dosage: 390 MG, Z (1DAILYX 3DAYS A WEEK)
     Route: 048
     Dates: start: 20210401, end: 20210401
  7. PACLITAXEL. [Suspect]
     Active Substance: PACLITAXEL
     Dosage: UNK
     Route: 048
     Dates: start: 20210422, end: 20210422
  8. DOSTARLIMAB [Suspect]
     Active Substance: DOSTARLIMAB
     Indication: HIV INFECTION
     Dosage: 500 MG, Z (Q3WKS)
     Route: 042
     Dates: start: 20210401, end: 20210401
  9. ENCEQUIDAR. [Suspect]
     Active Substance: ENCEQUIDAR
     Indication: HIV INFECTION
     Dosage: 15 MG, Z (1DAILYX 3DAYS A WEEK)
     Route: 048
     Dates: start: 20210401, end: 20210401

REACTIONS (1)
  - Immune-mediated dermatitis [Recovering/Resolving]

NARRATIVE: CASE EVENT DATE: 20210423
